FAERS Safety Report 11205726 (Version 1)
Quarter: 2015Q2

REPORT INFORMATION
  Report Type: Spontaneous
  Country: GB (occurrence: GB)
  Receive Date: 20150622
  Receipt Date: 20150622
  Transmission Date: 20150821
  Serious: Yes (Death)
  Sender: FDA-Public Use
  Company Number: GB-TEVA-570142ISR

PATIENT
  Age: 33 Year
  Sex: Male

DRUGS (1)
  1. PREDNISOLONE. [Suspect]
     Active Substance: PREDNISOLONE
     Indication: TYPE 2 LEPRA REACTION
     Dosage: (SELF MEDICATING)
     Route: 048

REACTIONS (6)
  - Night sweats [Unknown]
  - Cough [Unknown]
  - Weight decreased [Unknown]
  - Pleurisy [Unknown]
  - Mycobacterium test positive [Unknown]
  - Product use issue [Fatal]
